FAERS Safety Report 21554074 (Version 4)
Quarter: 2022Q4

REPORT INFORMATION
  Report Type: Report from Study
  Country: GB (occurrence: GB)
  Receive Date: 20221104
  Receipt Date: 20221215
  Transmission Date: 20230113
  Serious: Yes (Hospitalization, Other)
  Sender: FDA-Public Use
  Company Number: GB-ROCHE-2190583

PATIENT

DRUGS (15)
  1. NERATINIB [Suspect]
     Active Substance: NERATINIB
     Indication: HER2 positive breast cancer
     Dosage: 240 MG, QD (1/DAY)
     Route: 048
     Dates: start: 20180825, end: 201811
  2. OXYCODONE [Concomitant]
     Active Substance: OXYCODONE
     Indication: Product used for unknown indication
     Dosage: 1.25 MG
     Route: 058
     Dates: start: 201901, end: 20190406
  3. LOPERAMIDE [Concomitant]
     Active Substance: LOPERAMIDE
     Indication: Product used for unknown indication
     Dosage: 2 MG, UNKNOWN
     Route: 048
     Dates: start: 20181025, end: 20190406
  4. LANSOPRAZOLE [Concomitant]
     Active Substance: LANSOPRAZOLE
     Indication: Product used for unknown indication
     Dosage: 30 MG, QD (1/DAY)
     Route: 048
     Dates: start: 20181002, end: 201908
  5. BUDESONIDE [Concomitant]
     Active Substance: BUDESONIDE
     Indication: Product used for unknown indication
     Dosage: 9 MG
     Route: 048
     Dates: start: 20181025, end: 20181114
  6. LACTULOSE [Concomitant]
     Active Substance: LACTULOSE
     Indication: Product used for unknown indication
     Dosage: 20 MILLILITER, OD (20 ML, M3)
     Route: 048
     Dates: start: 201901, end: 20190406
  7. POTASSIUM BICARBONATE\POTASSIUM CHLORIDE [Concomitant]
     Active Substance: POTASSIUM BICARBONATE\POTASSIUM CHLORIDE
     Indication: Product used for unknown indication
     Dosage: 4 DOSAGE FORM, QD
     Route: 048
     Dates: start: 20181120, end: 20181125
  8. MIDAZOLAM [Concomitant]
     Active Substance: MIDAZOLAM
     Indication: Product used for unknown indication
     Dosage: 2.5 MG
     Route: 058
     Dates: start: 201901, end: 20190406
  9. GLYCOPYRROLATE [Concomitant]
     Active Substance: GLYCOPYRROLATE
     Indication: Product used for unknown indication
     Dosage: 200UG, UNKNOWN
     Route: 058
     Dates: start: 201901, end: 20190406
  10. OMEPRAZOLE [Concomitant]
     Active Substance: OMEPRAZOLE
     Indication: Product used for unknown indication
     Dosage: 20 MG
     Route: 048
     Dates: start: 201901, end: 20190406
  11. CYCLIZINE [Concomitant]
     Active Substance: CYCLIZINE
     Indication: Product used for unknown indication
     Dosage: 50 MG
     Route: 058
     Dates: start: 201901, end: 20190406
  12. POTASSIUM CHLORIDE [Concomitant]
     Active Substance: POTASSIUM CHLORIDE
     Indication: Product used for unknown indication
     Dosage: 2 DF, QD (1/DAY)
     Route: 048
     Dates: start: 20181120, end: 20181125
  13. AMOXICILLIN [Concomitant]
     Active Substance: AMOXICILLIN
     Indication: Product used for unknown indication
     Dosage: 654 MG, UNK
     Route: 042
     Dates: start: 20180923, end: 20180930
  14. LEVETIRACETAM [Concomitant]
     Active Substance: LEVETIRACETAM
     Indication: Product used for unknown indication
     Dosage: 1000 MILLIGRAM, QD
     Route: 065
     Dates: start: 20180918, end: 20190406
  15. DEXAMETHASONE [Concomitant]
     Active Substance: DEXAMETHASONE
     Indication: Product used for unknown indication
     Dosage: 2 MG, UNK
     Route: 048
     Dates: start: 20181002, end: 20181212

REACTIONS (6)
  - Seizure [Recovered/Resolved]
  - Seizure [Recovered/Resolved]
  - Appendicitis [Recovered/Resolved]
  - Hypokalaemia [Recovered/Resolved]
  - Dementia [Recovered/Resolved]
  - Diarrhoea [Recovered/Resolved]

NARRATIVE: CASE EVENT DATE: 20180909
